FAERS Safety Report 16551897 (Version 1)
Quarter: 2019Q3

REPORT INFORMATION
  Report Type: Spontaneous
  Country: CN (occurrence: CN)
  Receive Date: 20190710
  Receipt Date: 20190710
  Transmission Date: 20191004
  Serious: Yes (Death)
  Sender: FDA-Public Use
  Company Number: CN-PFIZER INC-2019293270

PATIENT
  Age: 86 Year
  Sex: Female

DRUGS (1)
  1. SUTENT [Suspect]
     Active Substance: SUNITINIB MALATE
     Indication: RENAL CANCER
     Dosage: 37.5 MG, 1X/DAY
     Dates: start: 20190412, end: 20190703

REACTIONS (1)
  - Death [Fatal]

NARRATIVE: CASE EVENT DATE: 20190703
